FAERS Safety Report 7700091-6 (Version None)
Quarter: 2011Q3

REPORT INFORMATION
  Report Type: 
  Country: None (occurrence: None)
  Receive Date: 20110822
  Receipt Date: 20110809
  Transmission Date: 20111222
  Serious: Yes (Hospitalization)
  Sender: FDA-Public Use
  Company Number: SG-PAR PHARMACEUTICAL, INC-2011SCPR003168

PATIENT

DRUGS (1)
  1. DOXYCYCLINE [Suspect]
     Indication: ACNE
     Dosage: UNK UNK, AT NIGHT
     Route: 048

REACTIONS (2)
  - DEHYDRATION [None]
  - EROSIVE OESOPHAGITIS [None]
